FAERS Safety Report 6836803-3 (Version None)
Quarter: 2010Q3

REPORT INFORMATION
  Report Type: 
  Country: None (occurrence: None)
  Receive Date: 20100708
  Receipt Date: 20100701
  Transmission Date: 20110219
  Serious: Yes (Hospitalization)
  Sender: FDA-Public Use
  Company Number: 2010SP036928

PATIENT
  Sex: Female

DRUGS (1)
  1. NUVARING [Suspect]
     Indication: CONTRACEPTION
     Dates: start: 20070501, end: 20080301

REACTIONS (8)
  - CEREBROVASCULAR ACCIDENT [None]
  - HAEMORRHAGE [None]
  - HEADACHE [None]
  - INTRACRANIAL VENOUS SINUS THROMBOSIS [None]
  - LOSS OF CONSCIOUSNESS [None]
  - PNEUMONIA [None]
  - SINUSITIS [None]
  - UNEVALUABLE EVENT [None]
